FAERS Safety Report 9444240 (Version 22)
Quarter: 2018Q1

REPORT INFORMATION
  Report Type: Report from Study
  Country: CA (occurrence: CA)
  Receive Date: 20130807
  Receipt Date: 20180315
  Transmission Date: 20180509
  Serious: Yes (Hospitalization, Other)
  Sender: FDA-Public Use
  Company Number: PHHY2013CA083553

PATIENT
  Age: 66 Year
  Sex: Female

DRUGS (5)
  1. SANDOSTATIN [Suspect]
     Active Substance: OCTREOTIDE ACETATE
     Indication: NEUROENDOCRINE CARCINOMA
     Dosage: 100 UG, ONCE/SINGLE
     Route: 058
     Dates: start: 20130719, end: 20130719
  2. SANDOSTATIN LAR DEPOT [Suspect]
     Active Substance: OCTREOTIDE ACETATE
     Dosage: 30 MG, EVERY 2 WEEKS
     Route: 030
     Dates: start: 20160722
  3. SANDOSTATIN LAR DEPOT [Suspect]
     Active Substance: OCTREOTIDE ACETATE
     Indication: NEUROENDOCRINE TUMOUR
     Dosage: 30 MG, QMO (EVERY 28 DAYS)
     Route: 030
     Dates: start: 20130724
  4. SANDOSTATIN LAR DEPOT [Suspect]
     Active Substance: OCTREOTIDE ACETATE
     Dosage: 60 MG, QMO (EVERY 4 WEEKS)
     Route: 030
     Dates: start: 20130724, end: 20160708
  5. SANDOSTATIN LAR DEPOT [Suspect]
     Active Substance: OCTREOTIDE ACETATE
     Dosage: 60 MG, EVERY 2 WEEKS
     Route: 030

REACTIONS (31)
  - Hypersensitivity [Unknown]
  - Dyspnoea [Unknown]
  - Malaise [Unknown]
  - Sinusitis [Recovering/Resolving]
  - Underdose [Unknown]
  - Scar [Recovering/Resolving]
  - Metastases to liver [Unknown]
  - Metastases to peritoneum [Unknown]
  - Cystitis [Unknown]
  - Stress [Unknown]
  - Hot flush [Not Recovered/Not Resolved]
  - Faeces soft [Unknown]
  - Needle issue [Unknown]
  - Flushing [Not Recovered/Not Resolved]
  - Abdominal pain [Unknown]
  - Vomiting [Unknown]
  - Inappropriate schedule of drug administration [Unknown]
  - Intestinal obstruction [Recovering/Resolving]
  - Malignant neoplasm progression [Unknown]
  - Urinary tract infection [Unknown]
  - Diarrhoea [Recovering/Resolving]
  - Thirst [Unknown]
  - Oral infection [Recovering/Resolving]
  - Blood pressure decreased [Unknown]
  - Feeling hot [Unknown]
  - Cough [Unknown]
  - Dizziness [Unknown]
  - Pruritus generalised [Unknown]
  - Small intestinal obstruction [Unknown]
  - Blood pressure systolic increased [Not Recovered/Not Resolved]
  - Oral candidiasis [Unknown]

NARRATIVE: CASE EVENT DATE: 20130801
